FAERS Safety Report 4637324-9 (Version None)
Quarter: 2005Q2

REPORT INFORMATION
  Report Type: 
  Country: None (occurrence: None)
  Receive Date: 20050328
  Receipt Date: 20041123
  Transmission Date: 20051028
  Serious: No
  Sender: FDA-Public Use
  Company Number: USA041184544

PATIENT
  Age: 55 Year
  Sex: Male

DRUGS (7)
  1. STRATTERA [Suspect]
     Indication: ATTENTION DEFICIT/HYPERACTIVITY DISORDER
     Dosage: 40 MG DAY
     Dates: start: 20030101, end: 20040815
  2. RISPERDAL [Concomitant]
  3. MULTI-VITAMIN [Concomitant]
  4. IBUPROFEN [Concomitant]
  5. CLONAZEPAM [Concomitant]
  6. FLUOXETINE [Concomitant]
  7. TRAZODONE [Concomitant]

REACTIONS (1)
  - DRUG SCREEN POSITIVE [None]
